FAERS Safety Report 6840421-0 (Version None)
Quarter: 2010Q3

REPORT INFORMATION
  Report Type: 
  Country: None (occurrence: None)
  Receive Date: 20100714
  Receipt Date: 20100705
  Transmission Date: 20110219
  Serious: Yes (Hospitalization)
  Sender: FDA-Public Use
  Company Number: GXKR2010IT07433

PATIENT
  Age: 84 Year
  Sex: Male

DRUGS (3)
  1. ACETYLSALICYLIC ACID SRT [Suspect]
     Indication: CEREBROVASCULAR ACCIDENT
     Dosage: 300 MG/DAY
     Route: 065
  2. ACETYLSALICYLIC ACID SRT [Suspect]
     Dosage: 100 MG/DAY
     Route: 065
  3. ANTIHYPERTENSIVE DRUGS [Concomitant]
     Indication: HYPERTENSION
     Route: 065

REACTIONS (4)
  - AUTOIMMUNE THROMBOCYTOPENIA [None]
  - ECCHYMOSIS [None]
  - LACUNAR INFARCTION [None]
  - PURPURA [None]
